FAERS Safety Report 16879692 (Version 3)
Quarter: 2019Q4

REPORT INFORMATION
  Report Type: Spontaneous
  Country: AT (occurrence: AT)
  Receive Date: 20191003
  Receipt Date: 20191014
  Transmission Date: 20200122
  Serious: Yes (Hospitalization, Other)
  Sender: FDA-Public Use
  Company Number: AT-009507513-1909AUT009180

PATIENT

DRUGS (33)
  1. MIRTAZAPINE. [Suspect]
     Active Substance: MIRTAZAPINE
     Indication: PRODUCT USED FOR UNKNOWN INDICATION
     Dosage: 30 MILLIGRAM, QD
     Route: 065
  2. CLOMIPRAMINE HYDROCHLORIDE. [Suspect]
     Active Substance: CLOMIPRAMINE HYDROCHLORIDE
     Dosage: 5
     Route: 042
  3. MAPROTILINE [Suspect]
     Active Substance: MAPROTILINE
     Indication: PRODUCT USED FOR UNKNOWN INDICATION
     Dosage: UNK
     Route: 065
  4. DULOXETINE HYDROCHLORIDE. [Suspect]
     Active Substance: DULOXETINE HYDROCHLORIDE
     Indication: PRODUCT USED FOR UNKNOWN INDICATION
     Dosage: UNK
     Route: 048
  5. CLOMIPRAMINE HYDROCHLORIDE. [Suspect]
     Active Substance: CLOMIPRAMINE HYDROCHLORIDE
     Dosage: UNK
     Route: 048
  6. LITHIUM. [Suspect]
     Active Substance: LITHIUM
     Indication: PRODUCT USED FOR UNKNOWN INDICATION
     Dosage: UNK
     Route: 065
  7. LITHIUM. [Suspect]
     Active Substance: LITHIUM
     Dosage: UNK
     Route: 065
  8. CLOMIPRAMINE HYDROCHLORIDE. [Suspect]
     Active Substance: CLOMIPRAMINE HYDROCHLORIDE
     Indication: PRODUCT USED FOR UNKNOWN INDICATION
     Dosage: 150 MILLIGRAM, QD
     Route: 048
  9. CLOMIPRAMINE HYDROCHLORIDE. [Suspect]
     Active Substance: CLOMIPRAMINE HYDROCHLORIDE
     Dosage: 25 MG, FREQ: UNK X 1 DAYS
     Route: 048
  10. CLOMIPRAMINE HYDROCHLORIDE. [Suspect]
     Active Substance: CLOMIPRAMINE HYDROCHLORIDE
     Dosage: 12.5
     Route: 042
  11. PREGABALIN. [Suspect]
     Active Substance: PREGABALIN
     Dosage: UNK
     Route: 065
  12. CLOMIPRAMINE HYDROCHLORIDE. [Suspect]
     Active Substance: CLOMIPRAMINE HYDROCHLORIDE
     Dosage: 12.5 MG, FREQ: UNK X 1 DAYS
     Route: 048
  13. CLOMIPRAMINE HYDROCHLORIDE. [Suspect]
     Active Substance: CLOMIPRAMINE HYDROCHLORIDE
     Dosage: 25 MILLIGRAM
     Route: 042
  14. CLOMIPRAMINE HYDROCHLORIDE. [Suspect]
     Active Substance: CLOMIPRAMINE HYDROCHLORIDE
     Dosage: 12.5 MG, QD FREQ: UNK X 1 DAYS, INJECTION NOS
     Route: 065
  15. LITHIUM. [Suspect]
     Active Substance: LITHIUM
     Dosage: UNK
     Route: 065
  16. CLOMIPRAMINE HYDROCHLORIDE. [Suspect]
     Active Substance: CLOMIPRAMINE HYDROCHLORIDE
     Dosage: 25 MG, QD FREQ: UNK X 1 DAYS, INJECTION NOS
     Route: 065
  17. AMITRIPTYLINE HYDROCHLORIDE. [Suspect]
     Active Substance: AMITRIPTYLINE HYDROCHLORIDE
     Indication: INSOMNIA
     Dosage: UNK
     Route: 065
  18. MOCLOBEMIDE [Suspect]
     Active Substance: MOCLOBEMIDE
     Indication: PRODUCT USED FOR UNKNOWN INDICATION
     Dosage: UNK
     Route: 065
  19. MAPROTILINE [Suspect]
     Active Substance: MAPROTILINE
     Dosage: UNK
     Route: 065
  20. ENOXAPARIN SODIUM. [Suspect]
     Active Substance: ENOXAPARIN SODIUM
     Indication: THROMBOSIS PROPHYLAXIS
     Dosage: 40 MILLIGRAM, QD
     Route: 058
  21. ZOLPIDEM [Suspect]
     Active Substance: ZOLPIDEM TARTRATE
     Dosage: UNK
     Route: 065
  22. QUETIAPINE FUMARATE. [Suspect]
     Active Substance: QUETIAPINE FUMARATE
     Indication: PRODUCT USED FOR UNKNOWN INDICATION
     Dosage: UNK
     Route: 065
  23. CLOMIPRAMINE HYDROCHLORIDE. [Suspect]
     Active Substance: CLOMIPRAMINE HYDROCHLORIDE
     Dosage: 75 MILLIGRAM, QD
     Route: 048
  24. MAPROTILINE [Suspect]
     Active Substance: MAPROTILINE
     Dosage: UNK
     Route: 065
  25. TOPIRAMATE. [Suspect]
     Active Substance: TOPIRAMATE
     Indication: THROMBOSIS PROPHYLAXIS
     Dosage: UNK
     Route: 065
  26. THERAPY UNSPECIFIED [Suspect]
     Active Substance: UNSPECIFIED INGREDIENT
     Dosage: 30 MILLIGRAM, QD
     Route: 065
  27. DULOXETINE HYDROCHLORIDE. [Suspect]
     Active Substance: DULOXETINE HYDROCHLORIDE
     Dosage: UNK
     Route: 048
  28. LAMOTRIGINE. [Suspect]
     Active Substance: LAMOTRIGINE
     Indication: SEDATION
     Dosage: UNK
     Route: 065
  29. PREGABALIN. [Suspect]
     Active Substance: PREGABALIN
     Indication: PRODUCT USED FOR UNKNOWN INDICATION
     Dosage: UNK
     Route: 065
  30. MAPROTILINE [Suspect]
     Active Substance: MAPROTILINE
     Dosage: UNK
     Route: 065
  31. DIAZEPAM. [Suspect]
     Active Substance: DIAZEPAM
     Indication: SEDATION
     Dosage: 24 MG, QD
     Route: 048
  32. DULOXETINE HYDROCHLORIDE. [Suspect]
     Active Substance: DULOXETINE HYDROCHLORIDE
     Dosage: UNK
     Route: 048
  33. ZOLPIDEM [Suspect]
     Active Substance: ZOLPIDEM TARTRATE
     Indication: INSOMNIA
     Dosage: UNK
     Route: 065

REACTIONS (21)
  - Chest discomfort [Unknown]
  - Sleep disorder [Unknown]
  - Nausea [Unknown]
  - Disturbance in attention [Unknown]
  - Weight decreased [Unknown]
  - Fracture [Unknown]
  - Suicidal ideation [Unknown]
  - Depression [Unknown]
  - Hypotension [Unknown]
  - Feeling abnormal [Unknown]
  - Restlessness [Unknown]
  - Decreased appetite [Unknown]
  - Tachycardia [Unknown]
  - Decreased activity [Unknown]
  - Tremor [Unknown]
  - Depressed mood [Unknown]
  - Dizziness [Unknown]
  - Drug ineffective [Unknown]
  - Abdominal discomfort [Unknown]
  - Decreased interest [Unknown]
  - Palpitations [Unknown]

NARRATIVE: CASE EVENT DATE: 2014
